FAERS Safety Report 6710741-9 (Version None)
Quarter: 2010Q2

REPORT INFORMATION
  Report Type: 
  Country: None (occurrence: None)
  Receive Date: 20100504
  Receipt Date: 20100504
  Transmission Date: 20101027
  Serious: No
  Sender: FDA-Public Use
  Company Number: None

PATIENT
  Age: 63 Year
  Sex: Female
  Weight: 49.8957 kg

DRUGS (2)
  1. FOSAMAX PLUS D [Suspect]
     Indication: BONE DENSITOMETRY
     Dosage: 1 PILL WEEK PO
     Route: 048
     Dates: start: 20030701, end: 20090224
  2. FOSAMAX PLUS D [Suspect]
     Indication: OSTEOPENIA
     Dosage: 1 PILL WEEK PO
     Route: 048
     Dates: start: 20030701, end: 20090224

REACTIONS (5)
  - ASTHENIA [None]
  - FALL [None]
  - FEMUR FRACTURE [None]
  - RIB FRACTURE [None]
  - STRESS FRACTURE [None]
